FAERS Safety Report 7114449-X (Version None)
Quarter: 2010Q4

REPORT INFORMATION
  Report Type: 
  Country: None (occurrence: None)
  Receive Date: 20101119
  Receipt Date: 20101105
  Transmission Date: 20110411
  Serious: Yes (Life-Threatening)
  Sender: FDA-Public Use
  Company Number: JP-ELI_LILLY_AND_COMPANY-JP201010005439

PATIENT
  Sex: Male
  Weight: 45 kg

DRUGS (11)
  1. CYMBALTA [Suspect]
     Indication: AUTONOMIC NEUROPATHY
     Dosage: 20 MG, EACH MORNING
     Route: 048
     Dates: start: 20101015, end: 20101015
  2. OMEPRAL [Concomitant]
     Indication: GASTRITIS
     Dosage: 20 MG, DAILY (1/D)
     Route: 048
     Dates: start: 20100826
  3. THEOLONG [Concomitant]
     Indication: BRONCHITIS
     Dosage: 200 MG, 2/D
     Route: 048
     Dates: start: 20100910
  4. MUCODYNE [Concomitant]
     Indication: BRONCHITIS
     Dosage: 250 MG, 3/D
     Route: 048
     Dates: start: 20100910
  5. MEXITIL [Concomitant]
     Indication: AUTONOMIC NEUROPATHY
     Dosage: 100 MG, 3/D
     Route: 048
     Dates: start: 20100818, end: 20101015
  6. OXYCONTIN [Concomitant]
     Indication: AUTONOMIC NEUROPATHY
     Dosage: 10 MG, 2/D
     Route: 048
     Dates: start: 20100604, end: 20101015
  7. LYRICA [Concomitant]
     Indication: AUTONOMIC NEUROPATHY
     Dosage: 150 MG, 2/D
     Route: 048
     Dates: start: 20100913, end: 20101015
  8. MIYA-BM [Concomitant]
     Indication: DIARRHOEA
     Dosage: 1 G, 3/D
     Route: 048
     Dates: start: 20100621
  9. MUCOSOLVAN [Concomitant]
     Route: 048
  10. WARFARIN [Concomitant]
     Route: 048
  11. MAGMITT [Concomitant]
     Route: 048

REACTIONS (2)
  - ANAPHYLACTIC SHOCK [None]
  - OFF LABEL USE [None]
